FAERS Safety Report 13713840 (Version 1)
Quarter: 2017Q3

REPORT INFORMATION
  Report Type: Spontaneous
  Country: TW (occurrence: TW)
  Receive Date: 20170704
  Receipt Date: 20170704
  Transmission Date: 20171127
  Serious: Yes (Death, Hospitalization, Other)
  Sender: FDA-Public Use
  Company Number: TW-ROCHE-1956807

PATIENT
  Age: 2 Year
  Sex: Female

DRUGS (1)
  1. TAMIFLU [Suspect]
     Active Substance: OSELTAMIVIR PHOSPHATE
     Indication: INFLUENZA
     Route: 065

REACTIONS (5)
  - Ataxia [Unknown]
  - Myocarditis [Fatal]
  - Encephalitis [Fatal]
  - Pyrexia [Unknown]
  - Cardiac arrest [Recovered/Resolved]
